FAERS Safety Report 6207820-1 (Version None)
Quarter: 2009Q2

REPORT INFORMATION
  Report Type: 
  Country: None (occurrence: None)
  Receive Date: 20090522
  Receipt Date: 20090514
  Transmission Date: 20091009
  Serious: Yes (Death)
  Sender: FDA-Public Use
  Company Number: 2009-01709

PATIENT
  Age: 65 Year
  Sex: Male
  Weight: 40 kg

DRUGS (9)
  1. VELCADE [Suspect]
     Indication: MULTIPLE MYELOMA
     Dosage: 1 MG/M2, INTRAVENOUS
     Route: 042
     Dates: start: 20090421, end: 20090421
  2. DECADRON [Concomitant]
  3. MAGNESIUM OXIDE (MAGNESIUM OXIDE) TABLET [Concomitant]
  4. ALLOPURINOL [Concomitant]
  5. CALONAL (PARACETAMOL) TABLET [Concomitant]
  6. GASMOTIN (MOSAPRIDE CITRATE) TABLET [Concomitant]
  7. GASCON (DIMETICONE) TABLET [Concomitant]
  8. FAMOTIDINE [Concomitant]
  9. OXYCONTIN (OXYCODONE HYDROCHLORIDE) TABLET [Concomitant]

REACTIONS (1)
  - RESPIRATORY FAILURE [None]
